FAERS Safety Report 18618710 (Version 2)
Quarter: 2020Q4

REPORT INFORMATION
  Report Type: Spontaneous
  Country: CA (occurrence: CA)
  Receive Date: 20201215
  Receipt Date: 20201222
  Transmission Date: 20210114
  Serious: Yes (Other)
  Sender: FDA-Public Use
  Company Number: CA-JNJFOC-20201219138

PATIENT
  Sex: Female

DRUGS (11)
  1. CARBAMAZEPINE. [Suspect]
     Active Substance: CARBAMAZEPINE
     Indication: SEIZURE
     Route: 065
  2. PHENOBARBITAL. [Suspect]
     Active Substance: PHENOBARBITAL
     Indication: SEIZURE
     Route: 065
  3. SIROLIMUS. [Concomitant]
     Active Substance: SIROLIMUS
     Route: 048
  4. LACOSAMIDE. [Suspect]
     Active Substance: LACOSAMIDE
     Indication: SEIZURE
     Route: 065
  5. PHENYTOIN. [Suspect]
     Active Substance: PHENYTOIN
     Indication: SEIZURE
     Route: 065
  6. TOPAMAX [Suspect]
     Active Substance: TOPIRAMATE
     Indication: SEIZURE
     Route: 048
  7. OXCARBAZEPINE. [Suspect]
     Active Substance: OXCARBAZEPINE
     Indication: SEIZURE
     Route: 065
  8. VIGABATRIN. [Suspect]
     Active Substance: VIGABATRIN
     Indication: PRODUCT USED FOR UNKNOWN INDICATION
     Route: 065
  9. LEVETIRACETAM. [Suspect]
     Active Substance: LEVETIRACETAM
     Indication: SEIZURE
     Route: 065
  10. MIDAZOLAM. [Suspect]
     Active Substance: MIDAZOLAM
     Indication: SEIZURE
     Route: 065
  11. SIROLIMUS. [Concomitant]
     Active Substance: SIROLIMUS
     Route: 048

REACTIONS (11)
  - Disease recurrence [Recovered/Resolved]
  - Off label use [Unknown]
  - Epilepsy [Recovered/Resolved]
  - Magnetic resonance imaging brain abnormal [Recovered/Resolved]
  - Flushing [Recovered/Resolved]
  - Neonatal seizure [Recovered/Resolved]
  - Heart rate increased [Recovered/Resolved]
  - Respiratory rate increased [Recovered/Resolved]
  - Drug ineffective [Unknown]
  - White matter lesion [Recovered/Resolved]
  - Product use issue [Unknown]
